FAERS Safety Report 9840955 (Version 1)
Quarter: 2013Q4

REPORT INFORMATION
  Report Type: Spontaneous
  Country: US (occurrence: None)
  Receive Date: 20131212
  Receipt Date: 20131212
  Transmission Date: 20140711
  Serious: Yes (Hospitalization)
  Sender: FDA-Public Use
  Company Number: 20130416CINRY4132

PATIENT
  Age: 21 Year
  Sex: Female

DRUGS (1)
  1. CINRYZE [Suspect]
     Indication: HEREDITARY ANGIOEDEMA
     Dosage: (1000 UNIT, UNKNOWN), INTRAVENOUS
     Route: 042
     Dates: start: 20100331

REACTIONS (2)
  - Hereditary angioedema [None]
  - Pyrexia [None]
